FAERS Safety Report 16889378 (Version 1)
Quarter: 2019Q4

REPORT INFORMATION
  Report Type: Spontaneous
  Country: IT (occurrence: IT)
  Receive Date: 20191007
  Receipt Date: 20191007
  Transmission Date: 20200122
  Serious: Yes (Hospitalization)
  Sender: FDA-Public Use
  Company Number: IT-TEVA-2019-IT-1117802

PATIENT
  Age: 51 Year
  Sex: Female

DRUGS (4)
  1. ARIPIPRAZOLE. [Suspect]
     Active Substance: ARIPIPRAZOLE
     Dosage: 200 MG
     Route: 048
  2. VENLAFAXINE [Suspect]
     Active Substance: VENLAFAXINE HYDROCHLORIDE
     Dosage: 1500 MG
     Route: 048
  3. GABAPENTIN. [Suspect]
     Active Substance: GABAPENTIN
     Dosage: 1000 MG
     Route: 048
  4. BUPROPION. [Suspect]
     Active Substance: BUPROPION
     Dosage: 1500 MG
     Route: 048

REACTIONS (4)
  - Supraventricular tachycardia [Unknown]
  - Epilepsy [Unknown]
  - Intentional overdose [Unknown]
  - Psychomotor hyperactivity [Unknown]

NARRATIVE: CASE EVENT DATE: 20190329
